FAERS Safety Report 5611362-1 (Version None)
Quarter: 2008Q1

REPORT INFORMATION
  Report Type: 
  Country: None (occurrence: None)
  Receive Date: 20080201
  Receipt Date: 20080121
  Transmission Date: 20080703
  Serious: Yes (Death, Life-Threatening, Hospitalization)
  Sender: FDA-Public Use
  Company Number: JP-PFIZER INC-2008004342

PATIENT
  Sex: Male

DRUGS (12)
  1. ESTRACYT [Suspect]
     Indication: PROSTATE CANCER
     Dosage: DAILY DOSE:626.8MG
     Route: 048
     Dates: start: 20071031, end: 20071104
  2. ESTRACYT [Suspect]
     Dosage: DAILY DOSE:156.7MG
     Route: 048
     Dates: start: 20071105, end: 20071203
  3. ESTRACYT [Suspect]
     Dosage: DAILY DOSE:626.8MG
     Route: 048
     Dates: start: 20071204, end: 20071208
  4. ESTRACYT [Suspect]
     Dosage: DAILY DOSE:156.7MG
     Route: 048
     Dates: start: 20071209, end: 20071210
  5. DOCETAXEL [Suspect]
     Indication: PROSTATE CANCER
     Dosage: DAILY DOSE:70MG
     Route: 042
     Dates: start: 20071101, end: 20071101
  6. DOCETAXEL [Suspect]
     Dosage: DAILY DOSE:70MG
     Route: 042
     Dates: start: 20071205, end: 20071205
  7. DEXAMETHASONE TAB [Concomitant]
     Indication: PROSTATE CANCER
     Route: 048
     Dates: start: 20071031, end: 20071104
  8. DEXAMETHASONE TAB [Concomitant]
     Route: 048
     Dates: start: 20071105, end: 20071203
  9. DEXAMETHASONE TAB [Concomitant]
     Route: 048
     Dates: start: 20071204, end: 20071208
  10. TAMSULOSIN HCL [Concomitant]
     Indication: BENIGN PROSTATIC HYPERPLASIA
     Route: 048
     Dates: start: 20070911, end: 20071210
  11. SOLIFENACIN SUCCINATE [Concomitant]
     Indication: HYPERTONIC BLADDER
     Route: 048
     Dates: start: 20070911, end: 20071210
  12. ASPIRIN [Concomitant]
     Indication: THROMBOSIS PROPHYLAXIS
     Route: 048
     Dates: start: 20071204, end: 20071214

REACTIONS (1)
  - RENAL FAILURE ACUTE [None]
